FAERS Safety Report 9658079 (Version 2)
Quarter: 2013Q4

REPORT INFORMATION
  Report Type: Spontaneous
  Country: US (occurrence: US)
  Receive Date: 20131030
  Receipt Date: 20131108
  Transmission Date: 20140711
  Serious: Yes (Other)
  Sender: FDA-Public Use
  Company Number: ALCN2013US005463

PATIENT
  Age: 34 Year
  Sex: Male

DRUGS (5)
  1. PREDNISOLONE ACETATE [Suspect]
     Indication: POSTOPERATIVE CARE
     Route: 047
  2. CIPROFLOXACIN [Concomitant]
     Indication: POSTOPERATIVE CARE
  3. GENTAMICIN SULFATE OPHTHALMIC [Concomitant]
     Indication: POSTOPERATIVE CARE
     Route: 047
  4. VIGAMOX [Concomitant]
     Indication: POSTOPERATIVE CARE
     Route: 047
  5. ATROPINE SULFATE [Concomitant]
     Indication: POSTOPERATIVE CARE
     Route: 047

REACTIONS (2)
  - Endophthalmitis [Recovered/Resolved with Sequelae]
  - Condition aggravated [Recovered/Resolved with Sequelae]
